FAERS Safety Report 12396616 (Version 1)
Quarter: 2016Q2

REPORT INFORMATION
  Report Type: Spontaneous
  Country: US (occurrence: None)
  Receive Date: 20160523
  Receipt Date: 20160523
  Transmission Date: 20160815
  Serious: Yes (Other)
  Sender: FDA-Public Use
  Company Number: None

PATIENT
  Age: 63 Year
  Sex: Female
  Weight: 68.04 kg

DRUGS (5)
  1. ZOLPIDEM [Concomitant]
     Active Substance: ZOLPIDEM\ZOLPIDEM TARTRATE
  2. CYMBALTA [Suspect]
     Active Substance: DULOXETINE HYDROCHLORIDE
     Indication: DEPRESSION
     Dosage: 1 CAPSULE ONCE A DAY
     Route: 048
     Dates: start: 20150801, end: 20160513
  3. CYMBALTA [Suspect]
     Active Substance: DULOXETINE HYDROCHLORIDE
     Indication: ANXIETY
     Dosage: 1 CAPSULE ONCE A DAY
     Route: 048
     Dates: start: 20150801, end: 20160513
  4. MULTI VITAMIN [Concomitant]
     Active Substance: VITAMINS
  5. VYVANSE [Concomitant]
     Active Substance: LISDEXAMFETAMINE DIMESYLATE

REACTIONS (4)
  - Dizziness [None]
  - Nausea [None]
  - Paraesthesia [None]
  - Vertigo [None]

NARRATIVE: CASE EVENT DATE: 20160516
